FAERS Safety Report 8314128-7 (Version None)
Quarter: 2012Q2

REPORT INFORMATION
  Report Type: 
  Country: None (occurrence: None)
  Receive Date: 20120426
  Receipt Date: 20120425
  Transmission Date: 20120825
  Serious: Yes (Other)
  Sender: FDA-Public Use
  Company Number: ES-BAYER-2012-040715

PATIENT
  Age: 56 Year
  Sex: Male

DRUGS (1)
  1. ULTRAVIST 150 [Suspect]
     Indication: UROGRAM
     Dosage: UNK
     Route: 042
     Dates: start: 20120420, end: 20120420

REACTIONS (3)
  - RASH GENERALISED [None]
  - RHINITIS [None]
  - DYSPNOEA [None]
